FAERS Safety Report 5227092-4 (Version None)
Quarter: 2007Q1

REPORT INFORMATION
  Report Type: 
  Country: None (occurrence: None)
  Receive Date: 20070202
  Receipt Date: 20070125
  Transmission Date: 20070707
  Serious: Yes (Other)
  Sender: FDA-Public Use
  Company Number: 2006UW26851

PATIENT
  Age: 61 Year
  Sex: Female
  Weight: 65.8 kg

DRUGS (9)
  1. ARIMIDEX [Suspect]
     Indication: BREAST CANCER STAGE I
     Route: 048
     Dates: start: 20061201
  2. ARIMIDEX [Suspect]
     Route: 048
     Dates: start: 20050501, end: 20061115
  3. ADVIL [Concomitant]
  4. PRAVACHOL [Concomitant]
  5. ACCUPRIL [Concomitant]
  6. PROCARDIA [Concomitant]
  7. ASPIRIN [Concomitant]
     Route: 048
  8. MOBIC [Concomitant]
     Dates: start: 20060201, end: 20060901
  9. TAMOXIFEN CITRATE [Concomitant]
     Indication: BREAST CANCER
     Route: 048
     Dates: start: 20021001, end: 20050501

REACTIONS (9)
  - ARTHRALGIA [None]
  - BACK PAIN [None]
  - CELLULITIS [None]
  - DYSPAREUNIA [None]
  - HOT FLUSH [None]
  - MUSCULAR WEAKNESS [None]
  - PAIN IN EXTREMITY [None]
  - PARAESTHESIA [None]
  - VULVOVAGINAL DRYNESS [None]
